FAERS Safety Report 7322900-5 (Version None)
Quarter: 2011Q1

REPORT INFORMATION
  Report Type: 
  Country: None (occurrence: None)
  Receive Date: 20110215
  Receipt Date: 20110202
  Transmission Date: 20110831
  Serious: Yes (Hospitalization)
  Sender: FDA-Public Use
  Company Number: 2011SP003511

PATIENT
  Age: 57 Year
  Sex: Male

DRUGS (5)
  1. NAPROXEN [Concomitant]
  2. PEG-INTRON [Suspect]
     Indication: HEPATITIS C
     Dosage: 1.5 MCG; QW; SC
     Route: 058
     Dates: start: 20100831, end: 20101206
  3. PRINZIDE [Concomitant]
  4. REBETOL [Suspect]
     Indication: HEPATITIS C
     Dosage: 600 MG; QD; PO
     Route: 048
     Dates: start: 20100831, end: 20101206
  5. ASPIRIN [Concomitant]

REACTIONS (14)
  - DIZZINESS [None]
  - GASTRIC ULCER [None]
  - FATIGUE [None]
  - PORTAL HYPERTENSION [None]
  - NOCTURIA [None]
  - HAEMOGLOBIN DECREASED [None]
  - HAEMORRHAGE [None]
  - MELAENA [None]
  - MUSCULOSKELETAL CHEST PAIN [None]
  - RESPIRATORY RATE INCREASED [None]
  - VARICES OESOPHAGEAL [None]
  - SPLENOMEGALY [None]
  - CHEST PAIN [None]
  - DYSPNOEA EXERTIONAL [None]
